FAERS Safety Report 20981608 (Version 1)
Quarter: 2022Q2

REPORT INFORMATION
  Report Type: Other
  Country: US (occurrence: None)
  Receive Date: 20220620
  Receipt Date: 20220620
  Transmission Date: 20220721
  Serious: Yes (Hospitalization)
  Sender: FDA-Public Use
  Company Number: US-ROCHE-3114882

PATIENT
  Sex: Female

DRUGS (17)
  1. ACTEMRA [Suspect]
     Active Substance: TOCILIZUMAB
     Indication: Giant cell arteritis
     Dosage: 162 MG/0.9ML?USE 0.9 ML
     Route: 058
     Dates: start: 202008
  2. ACTEMRA [Suspect]
     Active Substance: TOCILIZUMAB
  3. ACTEMRA [Suspect]
     Active Substance: TOCILIZUMAB
     Indication: Giant cell arteritis
     Dosage: 162MG/0.9ML
     Route: 058
  4. ACTEMRA [Suspect]
     Active Substance: TOCILIZUMAB
  5. ACTEMRA [Suspect]
     Active Substance: TOCILIZUMAB
  6. PREDNISONE [Concomitant]
     Active Substance: PREDNISONE
     Dosage: TAKE 1 + 1/2 TAB FOR 2 WEEKS AND THE 1 TAB QD
     Route: 065
  7. CEPHALEXIN [Concomitant]
     Active Substance: CEPHALEXIN
     Dosage: TAKE 1 CAPSULE BY MOUTH 3 (THREE) TIMES DAILY
     Route: 065
  8. FLUOXETINE [Concomitant]
     Active Substance: FLUOXETINE HYDROCHLORIDE
     Dosage: TAKE 1 CAPSULE BY MOUTH ONCE DAILY
     Route: 065
  9. DENOSUMAB [Concomitant]
     Active Substance: DENOSUMAB
  10. FUROSEMIDE [Concomitant]
     Active Substance: FUROSEMIDE
     Route: 048
  11. POTASSIUM CHLORIDE [Concomitant]
     Active Substance: POTASSIUM CHLORIDE
     Route: 048
  12. LETROZOLE [Concomitant]
     Active Substance: LETROZOLE
  13. ACETAMINOPHEN\HYDROCODONE [Concomitant]
     Active Substance: ACETAMINOPHEN\HYDROCODONE
     Indication: Pain
     Dosage: 5-325 MG
  14. CALCIUM CARBONATE [Concomitant]
     Active Substance: CALCIUM CARBONATE
     Route: 048
  15. ZYRTEC-D [Concomitant]
     Active Substance: CETIRIZINE HYDROCHLORIDE\PSEUDOEPHEDRINE HYDROCHLORIDE
     Route: 048
  16. IBRANCE [Concomitant]
     Active Substance: PALBOCICLIB
  17. DORZOLAMIDE/TIMOLOL EG [Concomitant]

REACTIONS (1)
  - Localised infection [Not Recovered/Not Resolved]
